FAERS Safety Report 8365929-0 (Version None)
Quarter: 2012Q2

REPORT INFORMATION
  Report Type: 
  Country: None (occurrence: None)
  Receive Date: 20120515
  Receipt Date: 20120515
  Transmission Date: 20120825
  Serious: Yes (Disabling, Other)
  Sender: FDA-Public Use
  Company Number: None

PATIENT
  Age: 48 Year
  Sex: Male
  Weight: 82.5547 kg

DRUGS (1)
  1. PROPECIA [Suspect]
     Indication: ANDROGENETIC ALOPECIA
     Dosage: 1MG 1 PER DAY PO
     Route: 048
     Dates: start: 20020101, end: 20120509

REACTIONS (6)
  - EXERCISE TOLERANCE DECREASED [None]
  - ARTHRALGIA [None]
  - FAT TISSUE INCREASED [None]
  - WEIGHT INCREASED [None]
  - MYALGIA [None]
  - PANIC REACTION [None]
